FAERS Safety Report 7002675-X (Version None)
Quarter: 2010Q3

REPORT INFORMATION
  Report Type: 
  Country: None (occurrence: None)
  Receive Date: 20100920
  Receipt Date: 20100908
  Transmission Date: 20110219
  Serious: Yes (Other)
  Sender: FDA-Public Use
  Company Number: US-ELI_LILLY_AND_COMPANY-US201009003613

PATIENT
  Sex: Female

DRUGS (5)
  1. FORTEO [Suspect]
     Indication: OSTEOPENIA
     Dosage: 20 UG, DAILY (1/D)
     Route: 065
  2. HYDROCHLOROTHIAZIDE [Concomitant]
     Dosage: UNK, DAILY (1/D)
  3. BISOPROLOL [Concomitant]
     Dosage: UNK, DAILY (1/D)
  4. CARDIZEM [Concomitant]
     Dosage: UNK, DAILY (1/D)
  5. SIMVASTATIN [Concomitant]
     Dosage: UNK, DAILY (1/D)

REACTIONS (1)
  - BREAST CANCER [None]
